FAERS Safety Report 7479463-3 (Version None)
Quarter: 2011Q2

REPORT INFORMATION
  Report Type: 
  Country: None (occurrence: None)
  Receive Date: 20110513
  Receipt Date: 20081001
  Transmission Date: 20111010
  Serious: Yes (Death, Other)
  Sender: FDA-Public Use
  Company Number: US-BAYER-201038931NA

PATIENT
  Age: 67 Year
  Sex: Female
  Weight: 66 kg

DRUGS (22)
  1. AMITRIPTYLINE HCL [Concomitant]
     Dosage: 50 MG, HS
  2. DURAMORPH PF [Concomitant]
     Dosage: 3 MG, UNK
  3. PREMARIN [Concomitant]
     Dosage: 0.625 MG, QD
  4. ACETYLSALICYLIC ACID SRT [Concomitant]
     Dosage: 325 MG, QD
  5. LOPID [Concomitant]
     Dosage: 600 MG, BID
  6. PROTAMINE SULFATE [Concomitant]
     Dosage: 25 MG, UNK
  7. TRASYLOL [Suspect]
     Indication: CORONARY ARTERY BYPASS
     Route: 042
     Dates: start: 20010501
  8. HEPARIN [Concomitant]
     Dosage: 10000 U, UNK
  9. VALIUM [Concomitant]
     Dosage: 5 MG, QD
  10. DIPRIVAN [Concomitant]
     Dosage: 100 MCG, UNK
  11. ZEMURON [Concomitant]
     Dosage: 50 MCG, UNK
  12. NORMODYNE [Concomitant]
     Dosage: 20 MG, UNK
  13. MANNITOL [Concomitant]
     Dosage: 12.5 MG, UNK
  14. TRASYLOL [Suspect]
     Indication: ENDARTERECTOMY
  15. GLUCOPHAGE [Concomitant]
     Dosage: 500 MG, BID
  16. MONOPRIL [Concomitant]
     Dosage: 20 MG, QD
  17. LASIX [Concomitant]
     Dosage: 20 MG, UNK
  18. GLUCOTROL XL [Concomitant]
     Dosage: 20 MG, QAM
  19. PROTAMINE SULFATE [Concomitant]
     Dosage: 50 MG, UNK
  20. NEURONTIN [Concomitant]
     Dosage: 600 MG, HS
  21. MIDAZOLAM HCL [Concomitant]
     Dosage: 2 MG, UNK
  22. HEPARIN [Concomitant]
     Dosage: 5000 U, UNK

REACTIONS (7)
  - PAIN [None]
  - EMOTIONAL DISTRESS [None]
  - CARDIAC ARREST [None]
  - INJURY [None]
  - STRESS [None]
  - ANXIETY [None]
  - SPINAL CORD INJURY [None]
